FAERS Safety Report 7746833-5 (Version None)
Quarter: 2011Q3

REPORT INFORMATION
  Report Type: 
  Country: None (occurrence: None)
  Receive Date: 20110913
  Receipt Date: 20110902
  Transmission Date: 20111222
  Serious: Yes (Hospitalization)
  Sender: FDA-Public Use
  Company Number: US-JNJFOC-20110902404

PATIENT
  Sex: Male
  Weight: 37.2 kg

DRUGS (2)
  1. REMICADE [Suspect]
     Route: 042
     Dates: start: 20100823
  2. REMICADE [Suspect]
     Indication: CROHN'S DISEASE
     Route: 042
     Dates: start: 20110820

REACTIONS (1)
  - CROHN'S DISEASE [None]
